FAERS Safety Report 25445546 (Version 1)
Quarter: 2025Q2

REPORT INFORMATION
  Report Type: Other
  Country: DE (occurrence: DE)
  Receive Date: 20250617
  Receipt Date: 20250617
  Transmission Date: 20250716
  Serious: Yes (Other)
  Sender: ZHEJIANG JINGXIN PHARMACEUTICAL
  Company Number: DE-Zhejiang Jingxin Pharmaceutical Co., Ltd-2178858

PATIENT
  Age: 67 Year
  Sex: Male

DRUGS (8)
  1. LEVETIRACETAM [Suspect]
     Active Substance: LEVETIRACETAM
     Indication: Seizure prophylaxis
  2. DESMOPRESSIN ACETATE [Suspect]
     Active Substance: DESMOPRESSIN ACETATE
  3. TESTOSTERONE [Concomitant]
     Active Substance: TESTOSTERONE
  4. LEVOTHYROXINE [Concomitant]
     Active Substance: LEVOTHYROXINE
  5. HYDROCORTISONE ACETATE [Concomitant]
     Active Substance: HYDROCORTISONE ACETATE
  6. IBUPROFEN [Suspect]
     Active Substance: IBUPROFEN
  7. TRAMADOL [Suspect]
     Active Substance: TRAMADOL
  8. FENTANYL [Suspect]
     Active Substance: FENTANYL

REACTIONS (2)
  - Hyponatraemic seizure [Recovered/Resolved]
  - Hyponatraemia [Recovered/Resolved]
